FAERS Safety Report 5505213-3 (Version None)
Quarter: 2007Q4

REPORT INFORMATION
  Report Type: 
  Country: None (occurrence: None)
  Receive Date: 20071102
  Receipt Date: 20071029
  Transmission Date: 20080405
  Serious: Yes (Other)
  Sender: FDA-Public Use
  Company Number: GB-BAYER-200710662BNE

PATIENT
  Age: 69 Year
  Sex: Male

DRUGS (2)
  1. CLOTRIMAZOLE [Suspect]
     Indication: OTITIS EXTERNA
     Route: 061
     Dates: start: 20070517
  2. SOFRADEX [Interacting]
     Indication: OTITIS EXTERNA CANDIDA
     Route: 061
     Dates: start: 20070511

REACTIONS (1)
  - FEELING HOT [None]
